FAERS Safety Report 9609319 (Version 1)
Quarter: 2013Q4

REPORT INFORMATION
  Report Type: Spontaneous
  Country: IT (occurrence: IT)
  Receive Date: 20131009
  Receipt Date: 20131009
  Transmission Date: 20140711
  Serious: Yes (Hospitalization)
  Sender: FDA-Public Use
  Company Number: IT-ELI_LILLY_AND_COMPANY-IT201310002715

PATIENT
  Sex: Male

DRUGS (1)
  1. EFIENT [Suspect]

REACTIONS (1)
  - Cerebrovascular accident [Unknown]
